FAERS Safety Report 10361830 (Version 1)
Quarter: 2014Q1

REPORT INFORMATION
  Report Type: Spontaneous
  Country: US (occurrence: None)
  Receive Date: 20140306
  Receipt Date: 20140306
  Transmission Date: 20141002
  Serious: Yes (Other)
  Sender: FDA-Public Use
  Company Number: 163-21880-13080388

PATIENT
  Age: 71 Year
  Sex: Female
  Weight: 60.78 kg

DRUGS (14)
  1. REVLIMID [Suspect]
     Indication: MYELODYSPLASTIC SYNDROME
     Route: 048
     Dates: start: 20130708, end: 20130718
  2. PROCRIT (ERYTHROPOIETIN) (INJECTION) [Concomitant]
  3. ZOFRAN (ONDANSETRON HYDROCHLORIDE) (TABLETS) [Concomitant]
  4. LOSARTAN POTASSIUM (TABLETS) [Concomitant]
  5. LEVOTHYROXINE SODIUM (TABLETS) [Concomitant]
  6. CITRUCEL (METHYLCELLULOSE) (500 MILLIGRAM, TABLETS) [Concomitant]
  7. MV-ONE (TABLETS) [Concomitant]
  8. CITRACAL CALCIUM + D (TABLETS) [Concomitant]
  9. ASPIRIN (TABLETS) [Concomitant]
  10. FEXOFENADINE HCL (FEXOFENADINE HYDROCHLORIDE) (TABLETS) [Concomitant]
  11. ATORVASTATIN CALCIUM (TABLETS) [Concomitant]
  12. ALPRAZOLAM (TABLETS) [Concomitant]
  13. RANITIDINE HCL (RANITIDINE HYDROCHLORIDE)( (TABLETS) [Concomitant]
  14. PHENAZOPYRIDINE HCL (PHENAZOPYRIDINE HYDROCHLORIDE) (TABLETS) [Concomitant]

REACTIONS (1)
  - Rash pruritic [None]
